FAERS Safety Report 15284258 (Version 1)
Quarter: 2018Q3

REPORT INFORMATION
  Report Type: Spontaneous
  Country: US (occurrence: US)
  Receive Date: 20180801
  Receipt Date: 20180801
  Transmission Date: 20181010
  Serious: Yes (Death)
  Sender: FDA-Public Use
  Company Number: None

PATIENT
  Age: 67 Year
  Sex: Male

DRUGS (6)
  1. CAPECITABINE. [Suspect]
     Active Substance: CAPECITABINE
     Indication: CHOLANGIOCARCINOMA
     Dosage: ?          OTHER FREQUENCY:BID X 12/21 DAYS;?
     Route: 048
     Dates: start: 20180525
  2. CHLORPROMAZINE 25MG [Concomitant]
     Active Substance: CHLORPROMAZINE
  3. DRONABINOL J5MG [Concomitant]
  4. SILENOR 6MG [Concomitant]
  5. SUCRALFATE 1 GM [Concomitant]
  6. OXYCONTIN [Concomitant]
     Active Substance: OXYCODONE HYDROCHLORIDE

REACTIONS (1)
  - Death [None]

NARRATIVE: CASE EVENT DATE: 20180724
